FAERS Safety Report 25983865 (Version 1)
Quarter: 2025Q4

REPORT INFORMATION
  Report Type: Spontaneous
  Country: US (occurrence: US)
  Receive Date: 20251031
  Receipt Date: 20251031
  Transmission Date: 20260118
  Serious: No
  Sender: AMGEN
  Company Number: US-AMGEN-USASP2025201362

PATIENT
  Age: 60 Year
  Sex: Male

DRUGS (4)
  1. NEULASTA [Suspect]
     Active Substance: PEGFILGRASTIM
     Indication: Prophylaxis
     Dosage: UNK UNK, ONE TIME DOSE
     Route: 065
     Dates: start: 20251003, end: 20251003
  2. CISPLATIN [Concomitant]
     Active Substance: CISPLATIN
     Indication: Testicular seminoma (pure) stage I
     Dosage: UNK
  3. VINBLASTINE [Concomitant]
     Active Substance: VINBLASTINE
     Indication: Testicular seminoma (pure) stage I
  4. BLEOMYCIN [Concomitant]
     Active Substance: BLEOMYCIN SULFATE
     Indication: Testicular seminoma (pure) stage I
     Route: 065

REACTIONS (3)
  - Bone pain [Not Recovered/Not Resolved]
  - Influenza like illness [Not Recovered/Not Resolved]
  - Feeling abnormal [Not Recovered/Not Resolved]

NARRATIVE: CASE EVENT DATE: 20251007
